FAERS Safety Report 25434393 (Version 2)
Quarter: 2025Q3

REPORT INFORMATION
  Report Type: Spontaneous
  Country: CA (occurrence: CA)
  Receive Date: 20250613
  Receipt Date: 20250814
  Transmission Date: 20251021
  Serious: Yes (Hospitalization, Other)
  Sender: PFIZER
  Company Number: CA-PFIZER INC-202500118438

PATIENT
  Age: 75 Year
  Sex: Female

DRUGS (2)
  1. RUXIENCE [Suspect]
     Active Substance: RITUXIMAB-PVVR
     Indication: Interstitial lung disease
     Route: 042
     Dates: start: 20241108, end: 20241108
  2. RUXIENCE [Suspect]
     Active Substance: RITUXIMAB-PVVR
     Route: 042
     Dates: start: 20241122, end: 20241122

REACTIONS (5)
  - Varicella zoster virus infection [Recovering/Resolving]
  - Spinal fracture [Unknown]
  - Abdominal pain [Unknown]
  - Back pain [Unknown]
  - Mobility decreased [Unknown]
